FAERS Safety Report 24434110 (Version 1)
Quarter: 2024Q4

REPORT INFORMATION
  Report Type: Spontaneous
  Country: CO (occurrence: CO)
  Receive Date: 20241014
  Receipt Date: 20241014
  Transmission Date: 20250115
  Serious: Yes (Other)
  Sender: LUNDBECK
  Company Number: CO-SA-SAC20231016000356

PATIENT

DRUGS (7)
  1. CLOBAZAM [Suspect]
     Active Substance: CLOBAZAM
     Indication: Epilepsy
     Dosage: 20 MG, BID
     Route: 048
     Dates: start: 2018
  2. CLOBAZAM [Suspect]
     Active Substance: CLOBAZAM
     Dosage: 10MG IN THE MORNING, 10MG AT NIGHT AND 5MG AT NOON
     Route: 048
  3. CLOBAZAM [Suspect]
     Active Substance: CLOBAZAM
     Dosage: 10 MG IN THE MORNING AND AT NIGHT (20 MG PER DAY)
     Dates: start: 2023
  4. VIGABATRIN [Concomitant]
     Active Substance: VIGABATRIN
     Indication: Product used for unknown indication
     Dosage: TWO TABLETS IN THE MORNING, ONE IN THE AFTERNOON AND TWO IN THE EVENING
     Route: 048
  5. VIGABATRIN [Concomitant]
     Active Substance: VIGABATRIN
     Dosage: 2 DF, Q8H
  6. VALPROIC ACID [Concomitant]
     Active Substance: VALPROIC ACID
     Indication: Product used for unknown indication
     Dosage: 5 ML (250 MG) EVERY 8 HOURS
     Route: 048
  7. TOPIRAMATE [Concomitant]
     Active Substance: TOPIRAMATE
     Indication: Product used for unknown indication
     Dosage: 100 MG, Q12H
     Route: 048

REACTIONS (5)
  - Drug withdrawal convulsions [Not Recovered/Not Resolved]
  - Tonic convulsion [Not Recovered/Not Resolved]
  - Off label use [Not Recovered/Not Resolved]
  - Muscle spasms [Not Recovered/Not Resolved]
  - Sleep disorder [Not Recovered/Not Resolved]

NARRATIVE: CASE EVENT DATE: 20230701
